FAERS Safety Report 4510631-6 (Version None)
Quarter: 2004Q4

REPORT INFORMATION
  Report Type: 
  Country: None (occurrence: None)
  Receive Date: 20041122
  Receipt Date: 20041022
  Transmission Date: 20050328
  Serious: No
  Sender: FDA-Public Use
  Company Number: 9164

PATIENT
  Age: 47 Year
  Sex: Male

DRUGS (24)
  1. CYTARABINE [Suspect]
     Indication: ACUTE MYELOID LEUKAEMIA
     Dosage: 3.58 G/3.56 G IV
     Route: 042
     Dates: start: 20040603, end: 20040607
  2. CYTARABINE [Suspect]
     Indication: ACUTE MYELOID LEUKAEMIA
     Dosage: 3.58 G/3.56 G IV
     Route: 042
     Dates: start: 20040715, end: 20040719
  3. FLUDARABINE PHOSPHATE [Concomitant]
  4. IDARUBICIN [Concomitant]
  5. LENOGRASTIM [Concomitant]
  6. PREDSOL [Concomitant]
  7. NYSTATIN [Concomitant]
  8. CORSODYL [Concomitant]
  9. CIPROFLOXACIN [Concomitant]
  10. FLUCLOXACILLIN [Concomitant]
  11. ROFECOXIB [Concomitant]
  12. ALLOPURINOL [Concomitant]
  13. GRANISETRON [Concomitant]
  14. DOMPERIDONE [Concomitant]
  15. LACTULOSE [Concomitant]
  16. CHLORPHENIRAMINE MALEATE [Concomitant]
  17. AMOXICILLIN [Concomitant]
  18. MEROPENEM [Concomitant]
  19. GELCLAIR [Concomitant]
  20. GLUCONAZOLE [Concomitant]
  21. SANDO K [Concomitant]
  22. TEICOPLANIN [Concomitant]
  23. GENTAMICIN [Concomitant]
  24. TAZOCIN [Concomitant]

REACTIONS (8)
  - ATAXIA [None]
  - DIZZINESS [None]
  - DRUG TOXICITY [None]
  - MALAISE [None]
  - NERVOUS SYSTEM DISORDER [None]
  - NYSTAGMUS [None]
  - PERIPHERAL SENSORY NEUROPATHY [None]
  - SEPSIS [None]
